FAERS Safety Report 26138960 (Version 1)
Quarter: 2025Q4

REPORT INFORMATION
  Report Type: Spontaneous
  Country: GB (occurrence: GB)
  Receive Date: 20251210
  Receipt Date: 20251210
  Transmission Date: 20260117
  Serious: Yes (Hospitalization, Other)
  Sender: BAXTER
  Company Number: GB-BAXTER-2025BAX025228

PATIENT
  Age: 42 Year
  Sex: Female

DRUGS (8)
  1. PROPOFOL [Suspect]
     Active Substance: PROPOFOL
     Indication: Induction of anaesthesia
     Dosage: 200MG
     Route: 065
  2. SEVOFLURANE [Suspect]
     Active Substance: SEVOFLURANE
     Indication: Induction of anaesthesia
     Dosage: COMMENCED AT 4%.
     Route: 065
  3. ROCURONIUM [Suspect]
     Active Substance: ROCURONIUM BROMIDE
     Indication: Induction of anaesthesia
     Dosage: 70MG
     Route: 065
  4. FENTANYL [Suspect]
     Active Substance: FENTANYL
     Indication: Tachycardia
     Dosage: 100?G
     Route: 065
  5. FENTANYL [Suspect]
     Active Substance: FENTANYL
     Indication: Induction of anaesthesia
  6. PARECOXIB [Concomitant]
     Active Substance: PARECOXIB
     Indication: Adverse event
     Dosage: 40 MG
  7. CLINDAMYCIN [Concomitant]
     Active Substance: CLINDAMYCIN
     Dosage: 600MG
  8. GENTAMICIN [Concomitant]
     Active Substance: GENTAMICIN

REACTIONS (3)
  - Loss of consciousness [Unknown]
  - Apnoea [Unknown]
  - Tachycardia [Unknown]
